FAERS Safety Report 16021212 (Version 1)
Quarter: 2019Q1

REPORT INFORMATION
  Report Type: Spontaneous
  Country: US (occurrence: US)
  Receive Date: 20190228
  Receipt Date: 20190228
  Transmission Date: 20190418
  Serious: Yes (Hospitalization)
  Sender: FDA-Public Use
  Company Number: None

PATIENT
  Age: 55 Year
  Sex: Female

DRUGS (19)
  1. MELOXICAM. [Concomitant]
     Active Substance: MELOXICAM
  2. BREO ELLIPTA [Concomitant]
     Active Substance: FLUTICASONE FUROATE\VILANTEROL TRIFENATATE
  3. DILTIAZEM. [Concomitant]
     Active Substance: DILTIAZEM
  4. METFORMIN [Concomitant]
     Active Substance: METFORMIN HYDROCHLORIDE
  5. FOLIC ACID. [Concomitant]
     Active Substance: FOLIC ACID
  6. SERTRALINE [Concomitant]
     Active Substance: SERTRALINE HYDROCHLORIDE
  7. LEVALBUTEROL. [Concomitant]
     Active Substance: LEVALBUTEROL
  8. ALIMTA [Suspect]
     Active Substance: PEMETREXED DISODIUM
     Indication: NEOPLASM MALIGNANT
     Dosage: ?          OTHER FREQUENCY:EVERY 21 DAYS;?
  9. FLUTICASONE. [Concomitant]
     Active Substance: FLUTICASONE
  10. MONTELUKAST [Concomitant]
     Active Substance: MONTELUKAST SODIUM
  11. TOUJEO [Concomitant]
     Active Substance: INSULIN GLARGINE
  12. FLECAINIDE [Concomitant]
     Active Substance: FLECAINIDE
  13. METOPROLOL. [Concomitant]
     Active Substance: METOPROLOL
  14. RANITIDINE. [Concomitant]
     Active Substance: RANITIDINE
  15. ATORVASTATIN [Concomitant]
     Active Substance: ATORVASTATIN
  16. FAMOTIDINE. [Concomitant]
     Active Substance: FAMOTIDINE
  17. BYDUREON [Concomitant]
     Active Substance: EXENATIDE
  18. NOVOLOG [Concomitant]
     Active Substance: INSULIN ASPART
  19. OXYCODONE [Concomitant]
     Active Substance: OXYCODONE

REACTIONS (1)
  - Hospitalisation [None]
